FAERS Safety Report 9330658 (Version 2)
Quarter: 2013Q3

REPORT INFORMATION
  Report Type: Spontaneous
  Country: US (occurrence: US)
  Receive Date: 20130605
  Receipt Date: 20130703
  Transmission Date: 20140515
  Serious: Yes (Hospitalization)
  Sender: FDA-Public Use
  Company Number: US-ROCHE-1231398

PATIENT
  Sex: Male

DRUGS (1)
  1. XOLAIR [Suspect]
     Indication: ASTHMA
     Dosage: 150 MG PER 1.2 ML INJECTION
     Route: 058
     Dates: start: 201304

REACTIONS (7)
  - Asthma [Unknown]
  - Angioedema [Unknown]
  - Anaphylactic reaction [Unknown]
  - Endotracheal intubation [Unknown]
  - Tracheostomy [Unknown]
  - Local swelling [Not Recovered/Not Resolved]
  - Asthenia [Not Recovered/Not Resolved]
